FAERS Safety Report 13345077 (Version 2)
Quarter: 2017Q1

REPORT INFORMATION
  Report Type: Spontaneous
  Country: US (occurrence: US)
  Receive Date: 20170317
  Receipt Date: 20170329
  Transmission Date: 20170428
  Serious: No
  Sender: FDA-Public Use
  Company Number: US-PFIZER INC-2017109448

PATIENT
  Age: 35 Year
  Sex: Female
  Weight: 61 kg

DRUGS (6)
  1. TIROSINT [Concomitant]
     Active Substance: LEVOTHYROXINE SODIUM
     Dosage: 100 UG, UNK
  2. VITAMIN D3 [Concomitant]
     Active Substance: CHOLECALCIFEROL
     Dosage: 1000 IU, UNK
  3. PROBIOTIC ACIDOPHILUS [Concomitant]
     Active Substance: LACTOBACILLUS ACIDOPHILUS
     Dosage: UNK (300MM-2)
  4. FISH OIL [Concomitant]
     Active Substance: FISH OIL
     Dosage: UNK (340-100)
  5. IRON [Concomitant]
     Active Substance: IRON
     Dosage: 18 MG, UNK
  6. GENOTROPIN [Suspect]
     Active Substance: SOMATROPIN
     Indication: HYPOPITUITARISM
     Dosage: 0.5 MG, DAILY
     Route: 058
     Dates: start: 20170224

REACTIONS (2)
  - Paraesthesia [Unknown]
  - Drug ineffective [Unknown]

NARRATIVE: CASE EVENT DATE: 20170309
